FAERS Safety Report 24002209 (Version 10)
Quarter: 2025Q4

REPORT INFORMATION
  Report Type: Report from Study
  Country: US (occurrence: US)
  Receive Date: 20240622
  Receipt Date: 20251202
  Transmission Date: 20260118
  Serious: Yes (Other)
  Sender: ABBVIE
  Company Number: US-ABBVIE-5811199

PATIENT
  Age: 51 Year
  Sex: Female
  Weight: 108.86 kg

DRUGS (2)
  1. SKYRIZI [Suspect]
     Active Substance: RISANKIZUMAB-RZAA
     Indication: Psoriasis
     Dosage: FORM STRENGTH: 150 MG
     Route: 058
     Dates: start: 20230921
  2. SKYRIZI [Suspect]
     Active Substance: RISANKIZUMAB-RZAA
     Indication: Psoriatic arthropathy

REACTIONS (29)
  - Maculopathy [Recovering/Resolving]
  - Abdominal pain upper [Recovered/Resolved]
  - Cataract [Recovered/Resolved]
  - Vision blurred [Recovered/Resolved]
  - Visual impairment [Recovered/Resolved]
  - Dry eye [Recovering/Resolving]
  - Vomiting [Recovered/Resolved]
  - Cataract [Recovered/Resolved]
  - Injection site papule [Not Recovered/Not Resolved]
  - Injection site vesicles [Recovered/Resolved]
  - Eye oedema [Recovering/Resolving]
  - Injection site pain [Recovered/Resolved]
  - Uveitis [Not Recovered/Not Resolved]
  - Visual impairment [Recovered/Resolved]
  - Intraocular pressure test abnormal [Unknown]
  - Psoriasis [Not Recovered/Not Resolved]
  - Intraocular pressure increased [Recovering/Resolving]
  - Bone disorder [Not Recovered/Not Resolved]
  - Faeces discoloured [Recovered/Resolved]
  - Hernia [Not Recovered/Not Resolved]
  - Cataract [Recovered/Resolved]
  - Injection site bruising [Recovered/Resolved]
  - Feeding disorder [Recovered/Resolved]
  - Hepatic cirrhosis [Unknown]
  - Diarrhoea [Recovering/Resolving]
  - Blood potassium decreased [Unknown]
  - Post procedural complication [Recovering/Resolving]
  - Oropharyngeal spasm [Recovering/Resolving]
  - Cholelithiasis [Recovered/Resolved]

NARRATIVE: CASE EVENT DATE: 20240101
